FAERS Safety Report 7599544-3 (Version None)
Quarter: 2011Q3

REPORT INFORMATION
  Report Type: 
  Country: None (occurrence: None)
  Receive Date: 20110711
  Receipt Date: 20110708
  Transmission Date: 20111222
  Serious: Yes (Hospitalization, Other)
  Sender: FDA-Public Use
  Company Number: ZA-BRISTOL-MYERS SQUIBB COMPANY-15736044

PATIENT
  Age: 17 Year
  Sex: Female
  Weight: 70 kg

DRUGS (9)
  1. ACETAMINOPHEN [Concomitant]
     Dates: start: 20110606
  2. PIPERACILLIN AND TAZOBACTAM [Concomitant]
     Dates: start: 20110625
  3. MORPHINE [Concomitant]
     Route: 048
  4. AMOXIL [Concomitant]
     Dates: start: 20110606
  5. ANDOLEX [Concomitant]
     Dosage: MOUTH WASH
  6. VANCOMYCIN [Concomitant]
     Dates: start: 20110627
  7. LACTULOSE [Concomitant]
  8. SPRYCEL [Suspect]
     Indication: LEUKAEMIA
     Dosage: INTERRUPTED ON 07JUN2011
     Route: 048
     Dates: start: 20110509
  9. AMIKACIN [Concomitant]
     Dates: start: 20110625

REACTIONS (7)
  - ANAL ULCER [None]
  - NEUTROPENIA [None]
  - FEBRILE NEUTROPENIA [None]
  - ORAL HERPES [None]
  - PAIN [None]
  - BLAST CELL CRISIS [None]
  - PYREXIA [None]
